FAERS Safety Report 17256811 (Version 3)
Quarter: 2020Q1

REPORT INFORMATION
  Report Type: Report from Study
  Country: IT (occurrence: IT)
  Receive Date: 20200110
  Receipt Date: 20200220
  Transmission Date: 20200409
  Serious: Yes (Other)
  Sender: FDA-Public Use
  Company Number: IT-TEVA-2020-IT-1164733

PATIENT
  Age: 70 Year
  Sex: Female

DRUGS (7)
  1. LEVOPRAID? 25 MG/ML GOCCE ORALI SOLUZIONE [Concomitant]
  2. CACIT (TM) 1000 [Concomitant]
  3. ANTRA 20 MG CAPSULE RIGIDE GASTRORESISTENTI [Concomitant]
  4. METHOTREXATE. [Suspect]
     Active Substance: METHOTREXATE
     Indication: RHEUMATOID ARTHRITIS
     Dosage: 10 MILLIGRAM
     Route: 058
     Dates: start: 20191002
  5. ATENOLOL. [Concomitant]
     Active Substance: ATENOLOL
  6. XANAX [Concomitant]
     Active Substance: ALPRAZOLAM
  7. MODURETIC 5-50 [Concomitant]
     Active Substance: AMILORIDE HYDROCHLORIDE\HYDROCHLOROTHIAZIDE

REACTIONS (1)
  - Liver disorder [Not Recovered/Not Resolved]

NARRATIVE: CASE EVENT DATE: 20191211
